FAERS Safety Report 4879778-9 (Version None)
Quarter: 2006Q1

REPORT INFORMATION
  Report Type: 
  Country: None (occurrence: None)
  Receive Date: 20060113
  Receipt Date: 20060103
  Transmission Date: 20060701
  Serious: Yes (Hospitalization)
  Sender: FDA-Public Use
  Company Number: FR-GLAXOSMITHKLINE-B0405433A

PATIENT
  Age: 46 Year
  Sex: Male

DRUGS (3)
  1. KIVEXA [Suspect]
     Indication: HIV INFECTION
     Route: 048
     Dates: start: 20051128, end: 20051213
  2. RITONAVIR [Concomitant]
     Indication: HIV INFECTION
     Route: 048
  3. ATAZANAVIR [Concomitant]
     Indication: HIV INFECTION
     Route: 048

REACTIONS (5)
  - HEADACHE [None]
  - HEPATIC ENZYME INCREASED [None]
  - HYPERBILIRUBINAEMIA [None]
  - PRURITUS [None]
  - RASH ERYTHEMATOUS [None]
